FAERS Safety Report 19022708 (Version 1)
Quarter: 2021Q1

REPORT INFORMATION
  Report Type: Spontaneous
  Country: RO (occurrence: RO)
  Receive Date: 20210318
  Receipt Date: 20210318
  Transmission Date: 20210420
  Serious: Yes (Other)
  Sender: FDA-Public Use
  Company Number: RO-ASTRAZENECA-2021A136071

PATIENT
  Sex: Female
  Weight: 89 kg

DRUGS (1)
  1. KOMBOGLYZE [Suspect]
     Active Substance: METFORMIN HYDROCHLORIDE\SAXAGLIPTIN
     Indication: TYPE 2 DIABETES MELLITUS
     Dosage: 2.5/1000 MG, TWO TIMES A DAY
     Route: 048
     Dates: start: 20210222, end: 20210309

REACTIONS (1)
  - Palpitations [Unknown]
